FAERS Safety Report 5926805-3 (Version None)
Quarter: 2008Q4

REPORT INFORMATION
  Report Type: 
  Country: None (occurrence: None)
  Receive Date: 20081022
  Receipt Date: 20021216
  Transmission Date: 20090506
  Serious: Yes (Other)
  Sender: FDA-Public Use
  Company Number: US-WYE-H06419008

PATIENT
  Sex: Male

DRUGS (2)
  1. ROBITUSSIN COUGH LONG ACTING [Suspect]
     Dosage: ONE 8 OUNCE BOTTLE (FREQUENCY UNKNOWN)
     Route: 048
  2. ALCOHOL [Concomitant]

REACTIONS (3)
  - DRUG ABUSE [None]
  - EUPHORIC MOOD [None]
  - INTENTIONAL OVERDOSE [None]
